FAERS Safety Report 9235452 (Version 1)
Quarter: 2013Q1

REPORT INFORMATION
  Report Type: Spontaneous
  Country: US (occurrence: None)
  Receive Date: 20121031
  Receipt Date: 20121031
  Transmission Date: 20140127
  Serious: No
  Sender: FDA-Public Use
  Company Number: PHEH2012US011646

PATIENT
  Age: 47 Year
  Sex: Female
  Weight: 81.6 kg

DRUGS (5)
  1. GILENYA [Suspect]
     Dosage: 1 DF, QD, ORAL
  2. NEXIUM (ESOMEPRAZOLE MAGNESIUM) [Concomitant]
  3. TIZANIDINE (TIZANIDINE) [Concomitant]
  4. IBUPROFEN (IBUPROFEN) [Concomitant]
  5. PROVIGIL (MODAFINIL) [Concomitant]

REACTIONS (2)
  - Feeling abnormal [None]
  - Dyspnoea [None]
